FAERS Safety Report 5713973-1 (Version None)
Quarter: 2008Q2

REPORT INFORMATION
  Report Type: 
  Country: None (occurrence: None)
  Receive Date: 20080422
  Receipt Date: 20080422
  Transmission Date: 20081010
  Serious: Yes (Hospitalization)
  Sender: FDA-Public Use
  Company Number: None

PATIENT
  Sex: Female
  Weight: 82.3 kg

DRUGS (4)
  1. METHOTREXATE [Suspect]
     Dosage: 12.65 G
  2. RITUXIMAB (MOAB C2B8 ANTI CD20, CHIMERIC) [Suspect]
     Dosage: 697 MG
  3. TEMOZOLOMIDE [Suspect]
     Dosage: 1350 MG
  4. LEUCOVORIN CALCIUM [Suspect]
     Dosage: 4.9 G

REACTIONS (3)
  - ABDOMINAL PAIN [None]
  - FAECALOMA [None]
  - PULMONARY EMBOLISM [None]
